FAERS Safety Report 20832021 (Version 1)
Quarter: 2022Q2

REPORT INFORMATION
  Report Type: 
  Country: None (occurrence: None)
  Receive Date: 20220516
  Receipt Date: 20220516
  Transmission Date: 20220721
  Serious: No
  Sender: FDA-Public Use
  Company Number: CA-ROCHE-2725651

PATIENT
  Age: 36 Year

DRUGS (8)
  1. OCREVUS [Suspect]
     Active Substance: OCRELIZUMAB
     Dosage: 300 MG AT DAY 0 AND 14, THEN 600 MG EVERY 6 MONTHS
     Dates: start: 20190418
  2. CETIRIZINE HYDROCHLORIDE [Concomitant]
     Active Substance: CETIRIZINE HYDROCHLORIDE
  3. PEPCID AC [Concomitant]
     Active Substance: FAMOTIDINE
  4. BENADRYL [Concomitant]
     Active Substance: DIPHENHYDRAMINE HYDROCHLORIDE
  5. GRAVOL [Concomitant]
     Active Substance: DIMENHYDRINATE
  6. TYLENOL [Concomitant]
     Active Substance: ACETAMINOPHEN
  7. CLARITIN [Concomitant]
     Active Substance: LORATADINE
  8. CETIRIZINE HYDROCHLORIDE [Concomitant]
     Active Substance: CETIRIZINE HYDROCHLORIDE

REACTIONS (4)
  - Nasopharyngitis [None]
  - SARS-CoV-2 test positive [None]
  - Herpes zoster [None]
  - Eczema [None]

NARRATIVE: CASE EVENT DATE: 20201128
